FAERS Safety Report 16186207 (Version 2)
Quarter: 2019Q2

REPORT INFORMATION
  Report Type: Spontaneous
  Country: JP (occurrence: JP)
  Receive Date: 20190411
  Receipt Date: 20190614
  Transmission Date: 20190711
  Serious: Yes (Life-Threatening, Hospitalization, Other)
  Sender: FDA-Public Use
  Company Number: JP-PFIZER INC-2018424796

PATIENT
  Age: 78 Year
  Sex: Female

DRUGS (7)
  1. BAKTAR [Suspect]
     Active Substance: SULFAMETHOXAZOLE\TRIMETHOPRIM
     Dosage: UNK
     Dates: start: 20181013
  2. XELJANZ [Suspect]
     Active Substance: TOFACITINIB CITRATE
     Indication: RHEUMATOID ARTHRITIS
     Dosage: 5 MG, 2X/DAY
     Route: 048
     Dates: start: 20180407, end: 20181004
  3. METOLATE [Suspect]
     Active Substance: METHOTREXATE
     Indication: RHEUMATOID ARTHRITIS
     Dosage: 4 MG, WEEKLY (PER 12 HOURS)
     Route: 048
     Dates: start: 20171103, end: 20171222
  4. METOLATE [Suspect]
     Active Substance: METHOTREXATE
     Dosage: 6 MG, WEEKLY (PER 12 HOURS)
     Route: 048
     Dates: start: 20171229, end: 20180203
  5. METOLATE [Suspect]
     Active Substance: METHOTREXATE
     Dosage: 8 MG, WEEKLY (PER 12 HOURS)
     Route: 048
     Dates: start: 20180209, end: 20180210
  6. BAKTAR [Suspect]
     Active Substance: SULFAMETHOXAZOLE\TRIMETHOPRIM
     Dosage: 6 DF, UNK
     Dates: end: 20181106
  7. METOLATE [Suspect]
     Active Substance: METHOTREXATE
     Dosage: 10 MG, WEEKLY (PER 12 HOURS)
     Route: 048
     Dates: start: 20180317, end: 20180325

REACTIONS (4)
  - Renal impairment [Recovered/Resolved]
  - Rash [Recovered/Resolved]
  - Malaise [Recovered/Resolved]
  - Pneumocystis jirovecii pneumonia [Recovered/Resolved]

NARRATIVE: CASE EVENT DATE: 20181005
